FAERS Safety Report 9511623 (Version 1)
Quarter: 2013Q1

REPORT INFORMATION
  Report Type: Spontaneous
  Country: US (occurrence: None)
  Receive Date: 20130305
  Receipt Date: 20130305
  Transmission Date: 20140127
  Serious: Yes (Hospitalization, Other)
  Sender: FDA-Public Use
  Company Number: 163-21880-12052054

PATIENT
  Age: 56 Year
  Sex: Male
  Weight: 90.72 kg

DRUGS (6)
  1. REVLIMID [Suspect]
     Indication: CHRONIC LYMPHOCYTIC LEUKAEMIA
     Dosage: 5 MG, 1 IN 1 D, PO
     Route: 048
     Dates: start: 20120408, end: 20120417
  2. AMITRIPTYLINE (AMITRIPTYLINE) [Concomitant]
  3. VALACYCLOVIR (VALACICLOVIR HYDROCHLORIDE) [Concomitant]
  4. WARFARIN (WARFARIN) [Concomitant]
  5. HALOPERIDOL (HALOPERIDOL) (HALOPERIDOL) [Concomitant]
  6. RITUXAN (RITUXIMAB) [Concomitant]

REACTIONS (3)
  - Tumour lysis syndrome [None]
  - Renal failure acute [None]
  - Platelet count decreased [None]
